FAERS Safety Report 13406166 (Version 1)
Quarter: 2017Q2

REPORT INFORMATION
  Report Type: Spontaneous
  Country: IN (occurrence: IN)
  Receive Date: 20170405
  Receipt Date: 20170405
  Transmission Date: 20170830
  Serious: Yes (Hospitalization, Other)
  Sender: FDA-Public Use
  Company Number: IN-ALVOGEN-2017-ALVOGEN-091839

PATIENT
  Age: 14 Year
  Sex: Female

DRUGS (2)
  1. PHENYTOIN. [Concomitant]
     Active Substance: PHENYTOIN
     Indication: EPILEPSY
  2. LEVETIRACETAM. [Suspect]
     Active Substance: LEVETIRACETAM
     Indication: EPILEPSY

REACTIONS (1)
  - Hypersensitivity vasculitis [Recovered/Resolved with Sequelae]
